FAERS Safety Report 9603431 (Version 2)
Quarter: 2013Q4

REPORT INFORMATION
  Report Type: Report from Study
  Country: JP (occurrence: JP)
  Receive Date: 20131007
  Receipt Date: 20131007
  Transmission Date: 20140711
  Serious: Yes (Hospitalization, Other)
  Sender: FDA-Public Use
  Company Number: JP-GILEAD-2013-0082793

PATIENT
  Age: 64 Year
  Sex: Female

DRUGS (17)
  1. AMBRISENTAN [Suspect]
     Indication: PULMONARY HYPERTENSION
     Dosage: 5 MG, BID
     Route: 048
     Dates: start: 20111118, end: 20120416
  2. AMBRISENTAN [Suspect]
     Dosage: 5 MG, QD
     Route: 048
     Dates: start: 20111114, end: 20111117
  3. IMATINIB MESYLATE [Suspect]
     Indication: PULMONARY HYPERTENSION
     Dosage: UNK
     Route: 048
     Dates: start: 20111007
  4. WARFARIN /00014802/ [Suspect]
     Indication: PULMONARY HYPERTENSION
     Dosage: UNK
     Route: 048
     Dates: start: 20111221
  5. REVATIO [Concomitant]
     Indication: PULMONARY HYPERTENSION
     Route: 048
     Dates: start: 20111110, end: 20120416
  6. ASPARA K [Concomitant]
     Indication: PROPHYLAXIS
     Route: 048
  7. ASPARA K [Concomitant]
     Route: 048
  8. OMEPRAL                            /00661201/ [Concomitant]
     Route: 048
     Dates: end: 20111205
  9. MAINTATE [Concomitant]
     Route: 048
  10. MAINTATE [Concomitant]
     Route: 048
  11. MERCAZOLE [Concomitant]
     Route: 048
     Dates: start: 20111129, end: 20120402
  12. FUROSEMIDE [Concomitant]
     Indication: PULMONARY HYPERTENSION
     Route: 048
     Dates: start: 20111116
  13. LAC-B [Concomitant]
     Route: 048
     Dates: start: 20111013
  14. BAYASPIRIN [Concomitant]
     Indication: PULMONARY HYPERTENSION
     Route: 048
     Dates: start: 20111220
  15. TS-1 [Concomitant]
     Route: 048
     Dates: start: 20111221
  16. ALDACTONE A [Concomitant]
     Indication: PULMONARY HYPERTENSION
     Route: 048
     Dates: start: 20120105
  17. ZYLORIC [Concomitant]
     Route: 048
     Dates: start: 20120118, end: 20120201

REACTIONS (4)
  - Renal impairment [Recovering/Resolving]
  - Oedema peripheral [Recovering/Resolving]
  - Gastrointestinal haemorrhage [Recovered/Resolved]
  - Anaemia [Recovering/Resolving]
